FAERS Safety Report 25019129 (Version 1)
Quarter: 2025Q1

REPORT INFORMATION
  Report Type: Spontaneous
  Country: ES (occurrence: ES)
  Receive Date: 20250227
  Receipt Date: 20250227
  Transmission Date: 20250409
  Serious: Yes (Other)
  Sender: PFIZER
  Company Number: None

PATIENT
  Age: 7 Year
  Sex: Male
  Weight: 26 kg

DRUGS (4)
  1. RAPAMUNE [Suspect]
     Active Substance: SIROLIMUS
     Indication: Renal transplant
     Dosage: 0.6 MG, 2X/DAY
     Route: 048
     Dates: start: 20240810, end: 20241123
  2. RAPAMUNE [Suspect]
     Active Substance: SIROLIMUS
     Dosage: 0.5 MG, 2X/DAY
     Route: 048
     Dates: start: 20241124
  3. TACROLIMUS [Suspect]
     Active Substance: TACROLIMUS
     Indication: Renal transplant
     Dosage: 5 MG, 1X/DAY
     Route: 048
     Dates: start: 20241124, end: 20241129
  4. TACROLIMUS [Suspect]
     Active Substance: TACROLIMUS
     Dosage: 2.4 MG, 2X/DAY
     Route: 048
     Dates: start: 20240810, end: 20241123

REACTIONS (2)
  - Hepatic cytolysis [Recovered/Resolved]
  - Off label use [Unknown]

NARRATIVE: CASE EVENT DATE: 20241125
